FAERS Safety Report 12283322 (Version 1)
Quarter: 2016Q2

REPORT INFORMATION
  Report Type: Spontaneous
  Country: CA (occurrence: CA)
  Receive Date: 20160419
  Receipt Date: 20160419
  Transmission Date: 20160815
  Serious: No
  Sender: FDA-Public Use
  Company Number: CA-JAZZ-2015-CA-011252

PATIENT
  Age: 35 Year
  Sex: Female
  Weight: 52.15 kg

DRUGS (6)
  1. XYREM [Suspect]
     Active Substance: SODIUM OXYBATE
     Indication: NARCOLEPSY
     Dosage: 2.25 G, BID
     Route: 048
     Dates: start: 20150717, end: 20150720
  2. XYREM [Suspect]
     Active Substance: SODIUM OXYBATE
     Dosage: VERY SMALL DOSE (LESS THEN 4.5G)
     Route: 048
     Dates: start: 20151029
  3. THYROID [Suspect]
     Active Substance: LEVOTHYROXINE\LIOTHYRONINE
     Indication: PRODUCT USED FOR UNKNOWN INDICATION
     Dosage: 60 MG, QD
     Route: 048
  4. HYDROCORTISONE. [Concomitant]
     Active Substance: HYDROCORTISONE
     Indication: PRODUCT USED FOR UNKNOWN INDICATION
     Dosage: SMALL DOSES FOR A TOTAL OF 20 TO 25 MG ONCE DAILY
  5. XYREM [Suspect]
     Active Substance: SODIUM OXYBATE
     Indication: CATAPLEXY
     Dosage: 3 G, BID
     Route: 048
     Dates: start: 20150721
  6. XYREM [Suspect]
     Active Substance: SODIUM OXYBATE
     Dosage: 1.5 G, QD
     Route: 048
     Dates: start: 20151112

REACTIONS (9)
  - Feeling cold [Recovering/Resolving]
  - Tremor [Recovering/Resolving]
  - Hypoaesthesia [Recovering/Resolving]
  - Heart rate decreased [Recovering/Resolving]
  - Dizziness [Recovering/Resolving]
  - Chills [Recovering/Resolving]
  - Feeling abnormal [Recovering/Resolving]
  - Nausea [Recovering/Resolving]
  - Mood altered [Recovering/Resolving]

NARRATIVE: CASE EVENT DATE: 20150722
